FAERS Safety Report 17361433 (Version 3)
Quarter: 2020Q2

REPORT INFORMATION
  Report Type: Spontaneous
  Country: US (occurrence: US)
  Receive Date: 20200203
  Receipt Date: 20200408
  Transmission Date: 20200713
  Serious: No
  Sender: FDA-Public Use
  Company Number: US-PFIZER INC-2020043150

PATIENT
  Age: 69 Year
  Sex: Male
  Weight: 99.79 kg

DRUGS (10)
  1. ATORVASTATIN [Concomitant]
     Active Substance: ATORVASTATIN
     Indication: BLOOD CHOLESTEROL ABNORMAL
     Dosage: 40 MG, DAILY
     Dates: start: 2015
  2. ALDACTONE [Concomitant]
     Active Substance: SPIRONOLACTONE
     Dosage: 12.5 MG, ALTERNATE DAY (EVERY OTHER DAY)
     Dates: start: 2015
  3. CARVEDILOL. [Concomitant]
     Active Substance: CARVEDILOL
     Indication: CARDIAC DISORDER
     Dosage: 12 MG, 3X/DAY (ONE TABLET 3 TIMES A DAY)
     Dates: start: 2015
  4. XARELTO [Concomitant]
     Active Substance: RIVAROXABAN
     Indication: ATRIAL FIBRILLATION
     Dosage: 20 MG, 1X/DAY
     Dates: start: 2018
  5. ASPIRIN [ACETYLSALICYLIC ACID] [Concomitant]
     Active Substance: ASPIRIN
     Indication: BLOOD PRESSURE ABNORMAL
     Dosage: 81 MG, ALTERNATE DAY (EVERY OTHER DAY)
     Dates: start: 2015
  6. CASTELLANI PAINT [Concomitant]
     Active Substance: PHENOL
     Dosage: 1.5 %, UNK
  7. HYDRALAZINE [Concomitant]
     Active Substance: HYDRALAZINE HYDROCHLORIDE
     Indication: BLOOD PRESSURE ABNORMAL
     Dosage: 25 MG, 2X/DAY (ONE TABLET TWICE DAILY)
     Dates: start: 2015
  8. EUCRISA [Suspect]
     Active Substance: CRISABOROLE
     Indication: INTERTRIGO
     Dosage: UNK, 2X/DAY (APPLY TO AFFECTED AREA TWICE A DAY. APPLYING TO PRIVATE PARTS)
  9. EUCRISA [Suspect]
     Active Substance: CRISABOROLE
     Indication: TINEA CRURIS
     Dosage: 20MG, 2X/DAY (APPLY TO AFFECTED AREA TWICE A DAY. APPLYING TO PRIVATE PARTS)
     Dates: start: 20200127
  10. LISINOPRIL. [Concomitant]
     Active Substance: LISINOPRIL
     Indication: BLOOD PRESSURE ABNORMAL
     Dosage: 5 MG, DAILY
     Dates: start: 2015

REACTIONS (4)
  - Rash [Not Recovered/Not Resolved]
  - Off label use [Unknown]
  - Product use in unapproved indication [Unknown]
  - Pruritus [Recovered/Resolved]

NARRATIVE: CASE EVENT DATE: 20200127
